FAERS Safety Report 7078301-0 (Version None)
Quarter: 2010Q4

REPORT INFORMATION
  Report Type: 
  Country: None (occurrence: None)
  Receive Date: 20101102
  Receipt Date: 20100505
  Transmission Date: 20110411
  Serious: No
  Sender: FDA-Public Use
  Company Number: US-BAYER-201021974NA

PATIENT

DRUGS (1)
  1. NEXAVAR [Suspect]
     Route: 048

REACTIONS (1)
  - RASH [None]
